FAERS Safety Report 15744960 (Version 1)
Quarter: 2018Q4

REPORT INFORMATION
  Report Type: Spontaneous
  Country: US (occurrence: US)
  Receive Date: 20181220
  Receipt Date: 20181220
  Transmission Date: 20190205
  Serious: Yes (Hospitalization, Other)
  Sender: FDA-Public Use
  Company Number: US-JNJFOC-20181140970

PATIENT
  Age: 76 Year
  Sex: Female
  Weight: 63 kg

DRUGS (16)
  1. BAYER ASPIRIN [Concomitant]
     Active Substance: ASPIRIN
     Route: 048
  2. TESSALON [Concomitant]
     Active Substance: BENZONATATE
     Indication: COUGH
     Route: 048
     Dates: start: 20171227
  3. LASIX [Concomitant]
     Active Substance: FUROSEMIDE
     Dosage: 1 TO 2 TABS AS DIRECTED
     Route: 048
     Dates: start: 20180309
  4. COZAAR [Concomitant]
     Active Substance: LOSARTAN POTASSIUM
     Route: 048
     Dates: start: 20171218
  5. IMBRUVICA [Suspect]
     Active Substance: IBRUTINIB
     Indication: WALDENSTROM^S MACROGLOBULINAEMIA
     Route: 048
     Dates: start: 201507
  6. NORVASC [Concomitant]
     Active Substance: AMLODIPINE BESYLATE
     Route: 048
     Dates: start: 20171218
  7. HYGROTON [Concomitant]
     Active Substance: CHLORTHALIDONE
     Route: 048
     Dates: start: 20170324
  8. MULTIVITAMINS [Concomitant]
     Active Substance: VITAMINS
     Route: 048
  9. TENORMIN [Concomitant]
     Active Substance: ATENOLOL
     Dates: start: 20180205
  10. FLUTICASONE PROPIONATE. [Concomitant]
     Active Substance: FLUTICASONE PROPIONATE
     Dates: start: 20171227
  11. SINGULAIR [Concomitant]
     Active Substance: MONTELUKAST SODIUM
     Route: 048
     Dates: start: 20171218
  12. PROAIR HFA [Concomitant]
     Active Substance: ALBUTEROL SULFATE
     Indication: WHEEZING
     Dosage: 2 PUFFS EVERY FOUR HOURS
     Dates: start: 20170523
  13. PROVENTIL [Concomitant]
     Active Substance: ALBUTEROL
     Dates: start: 20170217
  14. DYMISTA [Concomitant]
     Active Substance: AZELASTINE HYDROCHLORIDE\FLUTICASONE PROPIONATE
     Route: 045
  15. NORVASC [Concomitant]
     Active Substance: AMLODIPINE BESYLATE
     Route: 048
     Dates: start: 20180309
  16. IMBRUVICA [Suspect]
     Active Substance: IBRUTINIB
     Indication: WALDENSTROM^S MACROGLOBULINAEMIA
     Route: 048
     Dates: start: 20170822

REACTIONS (7)
  - Essential tremor [Unknown]
  - Scoliosis [Unknown]
  - Oedema peripheral [Unknown]
  - Product use issue [Unknown]
  - Hypertension [Unknown]
  - Off label use [Unknown]
  - Benign gastric neoplasm [Unknown]

NARRATIVE: CASE EVENT DATE: 201507
